FAERS Safety Report 13354683 (Version 1)
Quarter: 2017Q1

REPORT INFORMATION
  Report Type: Spontaneous
  Country: US (occurrence: US)
  Receive Date: 20170321
  Receipt Date: 20170321
  Transmission Date: 20170429
  Serious: Yes (Death, Other)
  Sender: FDA-Public Use
  Company Number: US-GLAXOSMITHKLINE-US2017038528

PATIENT
  Sex: Female

DRUGS (1)
  1. BENLYSTA [Suspect]
     Active Substance: BELIMUMAB
     Indication: PRODUCT USED FOR UNKNOWN INDICATION

REACTIONS (7)
  - Mitral valve replacement [Unknown]
  - Multiple organ dysfunction syndrome [Fatal]
  - Cutaneous lupus erythematosus [Unknown]
  - Coronary artery bypass [Unknown]
  - Aortic valve replacement [Unknown]
  - Cardiac pacemaker insertion [Unknown]
  - Systemic lupus erythematosus [Unknown]

NARRATIVE: CASE EVENT DATE: 2016
